FAERS Safety Report 14268958 (Version 1)
Quarter: 2017Q4

REPORT INFORMATION
  Report Type: Other
  Country: US (occurrence: US)
  Receive Date: 20171211
  Receipt Date: 20171211
  Transmission Date: 20180321
  Serious: Yes (Other)
  Sender: FDA-Public Use
  Company Number: US-VELOXIS PHARMACEUTICALS-2037001

PATIENT
  Age: 60 Year
  Sex: Male

DRUGS (2)
  1. ENVARSUS XR [Suspect]
     Active Substance: TACROLIMUS
     Indication: STEM CELL TRANSPLANT
  2. PREDNISONE. [Concomitant]
     Active Substance: PREDNISONE

REACTIONS (5)
  - Acute graft versus host disease in skin [Unknown]
  - Intentional product use issue [Unknown]
  - Nocardiosis [Unknown]
  - Acute graft versus host disease in liver [Unknown]
  - Hyperkalaemia [Unknown]
